FAERS Safety Report 19110254 (Version 1)
Quarter: 2021Q2

REPORT INFORMATION
  Report Type: Spontaneous
  Country: US (occurrence: US)
  Receive Date: 20210408
  Receipt Date: 20210408
  Transmission Date: 20210717
  Serious: Yes (Other)
  Sender: FDA-Public Use
  Company Number: US-ASTRAZENECA-2021A239895

PATIENT
  Age: 14777 Day
  Sex: Female
  Weight: 68 kg

DRUGS (76)
  1. PREVACID [Suspect]
     Active Substance: LANSOPRAZOLE
     Indication: GASTROOESOPHAGEAL REFLUX DISEASE
     Dosage: GENERIC
     Route: 065
     Dates: start: 2014
  2. BUSPIRONE [Concomitant]
     Active Substance: BUSPIRONE HYDROCHLORIDE
     Indication: ANXIETY
  3. CARBAMEZEPINE [Concomitant]
     Active Substance: CARBAMAZEPINE
     Indication: NEURALGIA
  4. FLUDROCORTISONE [Concomitant]
     Active Substance: FLUDROCORTISONE
  5. NORETHINDRONE. [Concomitant]
     Active Substance: NORETHINDRONE
  6. PROAIR HFA [Concomitant]
     Active Substance: ALBUTEROL SULFATE
  7. SAXENDA [Concomitant]
     Active Substance: LIRAGLUTIDE
  8. HUMALOG [Concomitant]
     Active Substance: INSULIN LISPRO
  9. QSYMIA [Concomitant]
     Active Substance: PHENTERMINE HYDROCHLORIDE\TOPIRAMATE
  10. EFFEXOR [Concomitant]
     Active Substance: VENLAFAXINE HYDROCHLORIDE
  11. NAPROXEN. [Concomitant]
     Active Substance: NAPROXEN
  12. TYLENOL [Concomitant]
     Active Substance: ACETAMINOPHEN
  13. PREVACID [Suspect]
     Active Substance: LANSOPRAZOLE
     Indication: GASTROOESOPHAGEAL REFLUX DISEASE
     Route: 065
     Dates: start: 2014, end: 2015
  14. PROTONIX [Suspect]
     Active Substance: PANTOPRAZOLE SODIUM
     Indication: GASTROOESOPHAGEAL REFLUX DISEASE
     Route: 065
  15. PAROXETINE. [Concomitant]
     Active Substance: PAROXETINE
     Indication: DEPRESSION
  16. HYDROXYCHLOROQUINE [Concomitant]
     Active Substance: HYDROXYCHLOROQUINE
  17. CALCITRIOL. [Concomitant]
     Active Substance: CALCITRIOL
  18. AMOX?CLAV [Concomitant]
     Active Substance: AMOXICILLIN\CLAVULANATE POTASSIUM
  19. MONTELUKAST [Concomitant]
     Active Substance: MONTELUKAST SODIUM
  20. DULOXETINE. [Concomitant]
     Active Substance: DULOXETINE
  21. BACTROBAN [Concomitant]
     Active Substance: MUPIROCIN\MUPIROCIN CALCIUM
  22. CODEINE [Concomitant]
     Active Substance: CODEINE
  23. MULTIVITAMINS [Concomitant]
     Active Substance: VITAMINS
  24. TIZANIDINE. [Concomitant]
     Active Substance: TIZANIDINE
  25. SULFAMETH/ TMP [Concomitant]
  26. NYSTATIN. [Concomitant]
     Active Substance: NYSTATIN
  27. AMOXICILLIN. [Concomitant]
     Active Substance: AMOXICILLIN
  28. FLONASE [Concomitant]
     Active Substance: FLUTICASONE PROPIONATE
  29. PAXIL [Concomitant]
     Active Substance: PAROXETINE HYDROCHLORIDE
  30. RITALIN [Concomitant]
     Active Substance: METHYLPHENIDATE HYDROCHLORIDE
  31. LORAZEPAM. [Concomitant]
     Active Substance: LORAZEPAM
     Indication: ANXIETY
  32. DICLOFENAC [Concomitant]
     Active Substance: DICLOFENAC
  33. DIAZEPAM. [Concomitant]
     Active Substance: DIAZEPAM
  34. DEXAMETHASONE. [Concomitant]
     Active Substance: DEXAMETHASONE
  35. CIPRO [Concomitant]
     Active Substance: CIPROFLOXACIN HYDROCHLORIDE
  36. DOXYCYCLINE HYCLATE. [Concomitant]
     Active Substance: DOXYCYCLINE HYCLATE
  37. TAMIFLU [Concomitant]
     Active Substance: OSELTAMIVIR PHOSPHATE
  38. NORCO [Concomitant]
     Active Substance: ACETAMINOPHEN\HYDROCODONE BITARTRATE
  39. EPIPEN [Concomitant]
     Active Substance: EPINEPHRINE
     Indication: HYPERSENSITIVITY
  40. METHYLPHENIDATE. [Concomitant]
     Active Substance: METHYLPHENIDATE
  41. ONDANSETRON [Concomitant]
     Active Substance: ONDANSETRON
  42. FLUTICASONE. [Concomitant]
     Active Substance: FLUTICASONE
  43. LEFLUNOMIDE. [Concomitant]
     Active Substance: LEFLUNOMIDE
  44. BYDUREON [Concomitant]
     Active Substance: EXENATIDE
  45. ANTIPY/BENZ [Concomitant]
  46. DEXTROSE. [Concomitant]
     Active Substance: DEXTROSE
  47. CYCLOBENZAPRINE. [Concomitant]
     Active Substance: CYCLOBENZAPRINE
  48. DIPHENHYDRAMINE HYDROCHLORIDE. [Concomitant]
     Active Substance: DIPHENHYDRAMINE HYDROCHLORIDE
  49. FIORICET [Concomitant]
     Active Substance: ACETAMINOPHEN\BUTALBITAL\CAFFEINE
  50. SYNTHROID [Concomitant]
     Active Substance: LEVOTHYROXINE SODIUM
     Indication: THYROID DISORDER
  51. MIDODRINE [Concomitant]
     Active Substance: MIDODRINE
  52. PREDNISONE. [Concomitant]
     Active Substance: PREDNISONE
  53. OXYCODONE?ACETAMINOPHEN [Concomitant]
     Active Substance: ACETAMINOPHEN\OXYCODONE HYDROCHLORIDE
  54. GABAPENTIN. [Concomitant]
     Active Substance: GABAPENTIN
  55. HUMIRA [Concomitant]
     Active Substance: ADALIMUMAB
  56. ALPRAZOLAM. [Concomitant]
     Active Substance: ALPRAZOLAM
  57. VITAMIN D3 [Concomitant]
     Active Substance: CHOLECALCIFEROL
  58. CINNAMON. [Concomitant]
     Active Substance: CINNAMON
  59. CENTRUM SILVER [Concomitant]
     Active Substance: MINERALS\VITAMINS
  60. CATHFLO ACTIVASE [Concomitant]
     Active Substance: ALTEPLASE
  61. QUESTRAN [Concomitant]
     Active Substance: CHOLESTYRAMINE
  62. PRILOSEC [Suspect]
     Active Substance: OMEPRAZOLE MAGNESIUM
     Indication: GASTROOESOPHAGEAL REFLUX DISEASE
     Route: 048
  63. PRILOSEC [Suspect]
     Active Substance: OMEPRAZOLE MAGNESIUM
     Indication: GASTROOESOPHAGEAL REFLUX DISEASE
     Dosage: GENERIC
     Route: 065
     Dates: end: 201801
  64. AMITRIPTYLINE [Concomitant]
     Active Substance: AMITRIPTYLINE
  65. CHOLESTYRAMINE. [Concomitant]
     Active Substance: CHOLESTYRAMINE
  66. PHENAZOPYRIDINE. [Concomitant]
     Active Substance: PHENAZOPYRIDINE
  67. PATANASE [Concomitant]
     Active Substance: OLOPATADINE HYDROCHLORIDE
  68. CLARITHROMYCIN. [Concomitant]
     Active Substance: CLARITHROMYCIN
  69. RITUXAN [Concomitant]
     Active Substance: RITUXIMAB
  70. PROTONIX [Suspect]
     Active Substance: PANTOPRAZOLE SODIUM
     Indication: GASTROOESOPHAGEAL REFLUX DISEASE
     Dosage: GENERIC
     Route: 065
     Dates: end: 201801
  71. BELVIQ [Concomitant]
     Active Substance: LORCASERIN HYDROCHLORIDE
  72. ESCITALOPRAM [Concomitant]
     Active Substance: ESCITALOPRAM OXALATE
  73. LEXAPRO [Concomitant]
     Active Substance: ESCITALOPRAM OXALATE
  74. CANNABIDIOL [Concomitant]
     Active Substance: CANNABIDIOL
  75. MENTHOL. [Concomitant]
     Active Substance: MENTHOL
  76. ERYTHROMYCIN. [Concomitant]
     Active Substance: ERYTHROMYCIN

REACTIONS (4)
  - Chronic kidney disease [Not Recovered/Not Resolved]
  - Renal failure [Unknown]
  - End stage renal disease [Unknown]
  - Acute kidney injury [Unknown]

NARRATIVE: CASE EVENT DATE: 20160304
